FAERS Safety Report 8707616 (Version 2)
Quarter: 2013Q4

REPORT INFORMATION
  Report Type: Spontaneous
  Country: US (occurrence: US)
  Receive Date: 20120805
  Receipt Date: 20131101
  Transmission Date: 20140711
  Serious: No
  Sender: FDA-Public Use
  Company Number: US-009507513-1207USA009745

PATIENT
  Sex: Female

DRUGS (2)
  1. ZOCOR [Suspect]
     Dosage: 40 MG, UNK
     Route: 048
  2. NORVASC [Suspect]
     Dosage: 5 MG, UNK

REACTIONS (2)
  - Alopecia [Unknown]
  - Nausea [Unknown]
